FAERS Safety Report 5221565-6 (Version None)
Quarter: 2007Q1

REPORT INFORMATION
  Report Type: 
  Country: None (occurrence: None)
  Receive Date: 20070127
  Receipt Date: 20070116
  Transmission Date: 20070707
  Serious: Yes (Other)
  Sender: FDA-Public Use
  Company Number: GB-ABBOTT-07P-167-0355916-00

PATIENT
  Sex: Female

DRUGS (1)
  1. EPILIM CHRONO TABLETS [Suspect]
     Indication: DRUG USE FOR UNKNOWN INDICATION
     Route: 048
     Dates: start: 20061101

REACTIONS (4)
  - AKINESIA [None]
  - APHASIA [None]
  - LOSS OF CONSCIOUSNESS [None]
  - SOMNOLENCE [None]
